FAERS Safety Report 8816817 (Version 1)
Quarter: 2012Q4

REPORT INFORMATION
  Report Type: Spontaneous
  Country: HU (occurrence: None)
  Receive Date: 20121001
  Receipt Date: 20121001
  Transmission Date: 20130627
  Serious: Yes (Other)
  Sender: FDA-Public Use
  Company Number: 2012000207

PATIENT
  Age: 65 Year
  Sex: Female

DRUGS (1)
  1. ACEON [Suspect]
     Indication: HYPERTENSION

REACTIONS (3)
  - Autoimmune thyroiditis [None]
  - Thrombocytopenia [None]
  - Hypothyroidism [None]
